FAERS Safety Report 4984497-4 (Version None)
Quarter: 2006Q2

REPORT INFORMATION
  Report Type: 
  Country: None (occurrence: None)
  Receive Date: 20060427
  Receipt Date: 20051014
  Transmission Date: 20061013
  Serious: Yes (Hospitalization)
  Sender: FDA-Public Use
  Company Number: HQWYE084318OCT05

PATIENT
  Sex: Female

DRUGS (8)
  1. ENBREL [Suspect]
     Indication: RHEUMATOID ARTHRITIS
     Route: 058
     Dates: start: 20050611, end: 20051006
  2. ENBREL [Suspect]
     Route: 058
     Dates: start: 20050923, end: 20051006
  3. PREDONINE [Concomitant]
     Route: 065
  4. OMEPRAZOLE [Concomitant]
     Route: 065
  5. INDOMETHACIN [Concomitant]
     Route: 065
  6. CHLORPHENESIN CARBAMATE [Concomitant]
     Route: 065
  7. MUCOSOLVAN [Concomitant]
     Route: 065
  8. ISONIAZID [Concomitant]
     Route: 065

REACTIONS (2)
  - MALAISE [None]
  - SARCOIDOSIS [None]
